FAERS Safety Report 15798663 (Version 5)
Quarter: 2019Q1

REPORT INFORMATION
  Report Type: Spontaneous
  Country: US (occurrence: US)
  Receive Date: 20190108
  Receipt Date: 20190329
  Transmission Date: 20190417
  Serious: No
  Sender: FDA-Public Use
  Company Number: US-SA-2019SA002498

PATIENT
  Age: 74 Year
  Sex: Female

DRUGS (1)
  1. TOUJEO [Suspect]
     Active Substance: INSULIN GLARGINE
     Indication: DIABETES MELLITUS
     Dosage: UNK, UNK
     Route: 065

REACTIONS (3)
  - Hypersensitivity [Unknown]
  - Pruritus generalised [Unknown]
  - Rash [Unknown]
